FAERS Safety Report 21493183 (Version 1)
Quarter: 2022Q4

REPORT INFORMATION
  Report Type: Spontaneous
  Country: US (occurrence: US)
  Receive Date: 20221021
  Receipt Date: 20221021
  Transmission Date: 20230112
  Serious: No
  Sender: FDA-Public Use
  Company Number: US-ALLERGAN-2201861US

PATIENT
  Age: 87 Year
  Sex: Female

DRUGS (5)
  1. COMBIGAN [Suspect]
     Active Substance: BRIMONIDINE TARTRATE\TIMOLOL MALEATE
     Indication: Glaucoma
     Dosage: 2 GTT, BID
     Route: 047
  2. LATANOPROST [Concomitant]
     Active Substance: LATANOPROST
     Dosage: UNK, QHS
  3. UNK statin [Concomitant]
     Indication: Blood cholesterol increased
     Dosage: UNK DOSE THREE TIMES A WEEK
  4. VITAMINS NOS [Concomitant]
     Active Substance: VITAMINS
  5. METOPROLOL [Concomitant]
     Active Substance: METOPROLOL
     Indication: Hypertension

REACTIONS (1)
  - Skin hyperpigmentation [Not Recovered/Not Resolved]
